FAERS Safety Report 11077193 (Version 1)
Quarter: 2015Q2

REPORT INFORMATION
  Report Type: Report from Study
  Country: US (occurrence: US)
  Receive Date: 20150429
  Receipt Date: 20150429
  Transmission Date: 20150821
  Serious: Yes (Death, Other)
  Sender: FDA-Public Use
  Company Number: US-GILEAD-2015-0151069

PATIENT
  Age: 82 Year
  Sex: Female

DRUGS (3)
  1. IDELALISIB [Suspect]
     Active Substance: IDELALISIB
     Indication: CHRONIC LYMPHOCYTIC LEUKAEMIA
     Dosage: 150 MG, BID
     Route: 048
     Dates: start: 20150305
  2. IDELALISIB [Suspect]
     Active Substance: IDELALISIB
     Indication: TRANSAMINASES INCREASED
  3. IDELALISIB [Suspect]
     Active Substance: IDELALISIB
     Indication: BLOOD LACTATE DEHYDROGENASE INCREASED

REACTIONS (1)
  - Death [Fatal]

NARRATIVE: CASE EVENT DATE: 20150424
